FAERS Safety Report 24532795 (Version 3)
Quarter: 2025Q1

REPORT INFORMATION
  Report Type: Report from Study
  Country: US (occurrence: US)
  Receive Date: 20241022
  Receipt Date: 20250227
  Transmission Date: 20250409
  Serious: Yes (Other)
  Sender: NOVARTIS
  Company Number: US-002147023-NVSC2023US270318

PATIENT
  Sex: Female

DRUGS (4)
  1. KESIMPTA [Suspect]
     Active Substance: OFATUMUMAB
     Indication: Multiple sclerosis
     Route: 058
     Dates: start: 20231204
  2. KESIMPTA [Suspect]
     Active Substance: OFATUMUMAB
     Route: 058
     Dates: start: 2023
  3. VITAMIN B COMPLEX [Concomitant]
     Active Substance: CYANOCOBALAMIN\DEXPANTHENOL\NIACINAMIDE\PYRIDOXINE HYDROCHLORIDE\RIBOFLAVIN 5^-PHOSPHATE SODIUM\THIA
     Indication: Product used for unknown indication
     Dosage: INJECTION, QMO
     Route: 065
  4. VITAMIN D [Concomitant]
     Active Substance: VITAMIN D NOS
     Indication: Product used for unknown indication
     Dosage: INJECTION, QMO
     Route: 065

REACTIONS (25)
  - Multiple sclerosis [Unknown]
  - Urinary tract infection [Unknown]
  - Fatigue [Unknown]
  - Injection site bruising [Unknown]
  - Somnolence [Unknown]
  - Asthenia [Unknown]
  - Stress [Unknown]
  - JC polyomavirus test positive [Unknown]
  - Balance disorder [Unknown]
  - Illness [Unknown]
  - Nasopharyngitis [Unknown]
  - Injection site haemorrhage [Recovered/Resolved]
  - Dysphagia [Unknown]
  - COVID-19 [Recovered/Resolved]
  - Cough [Recovering/Resolving]
  - Heart rate abnormal [Unknown]
  - Feeling abnormal [Unknown]
  - Restlessness [Unknown]
  - Muscle spasms [Recovering/Resolving]
  - Insomnia [Unknown]
  - Sluggishness [Unknown]
  - Tremor [Unknown]
  - Hyperthermia [Unknown]
  - Sensitivity to weather change [Unknown]
  - Gait disturbance [Unknown]
